FAERS Safety Report 6618309-X (Version None)
Quarter: 2010Q1

REPORT INFORMATION
  Report Type: 
  Country: None (occurrence: None)
  Receive Date: 20100308
  Receipt Date: 20100122
  Transmission Date: 20100710
  Serious: No
  Sender: FDA-Public Use
  Company Number: US-BAXTER-2009BH011021

PATIENT
  Age: 46 Year
  Sex: Female
  Weight: 89 kg

DRUGS (13)
  1. HEPARIN SODIUM INJECTION [Suspect]
     Indication: PROPHYLAXIS
     Route: 065
     Dates: start: 20070101, end: 20070101
  2. HEPARIN SODIUM INJECTION [Suspect]
     Route: 042
     Dates: start: 20080308, end: 20080308
  3. HEPARIN SODIUM INJECTION [Suspect]
     Route: 042
     Dates: start: 20080315, end: 20080315
  4. XANAX [Concomitant]
     Indication: ANXIETY
     Route: 048
  5. OXYCONTIN [Concomitant]
     Indication: DRUG USE FOR UNKNOWN INDICATION
     Route: 065
  6. OXYCONTIN [Concomitant]
     Route: 065
  7. OXYCONTIN [Concomitant]
     Route: 065
  8. HORMONES AND RELATED AGENTS [Concomitant]
     Indication: DRUG USE FOR UNKNOWN INDICATION
     Route: 065
  9. NITROGLYCERIN [Concomitant]
     Indication: CHEST PAIN
     Route: 065
  10. ZOFRAN [Concomitant]
     Indication: NAUSEA
     Route: 042
     Dates: start: 20080308, end: 20080308
  11. NORMAL SALINE [Concomitant]
     Indication: NAUSEA
     Route: 041
     Dates: start: 20080308, end: 20080308
  12. ASPIRIN [Concomitant]
     Indication: CHEST PAIN
     Route: 048
     Dates: start: 20080315, end: 20080315
  13. VICODIN [Concomitant]
     Indication: CHEST PAIN
     Route: 048
     Dates: start: 20080315, end: 20080315

REACTIONS (5)
  - ABDOMINAL PAIN [None]
  - CHEST PAIN [None]
  - MALAISE [None]
  - NAUSEA [None]
  - PAIN IN EXTREMITY [None]
